FAERS Safety Report 6939783-5 (Version None)
Quarter: 2010Q3

REPORT INFORMATION
  Report Type: 
  Country: None (occurrence: None)
  Receive Date: 20100825
  Receipt Date: 20100817
  Transmission Date: 20110219
  Serious: No
  Sender: FDA-Public Use
  Company Number: US-BIOGENIDEC-2010BI028833

PATIENT
  Age: 51 Year
  Sex: Female

DRUGS (2)
  1. TYSABRI [Suspect]
     Indication: MULTIPLE SCLEROSIS
     Route: 042
     Dates: start: 20080617, end: 20080715
  2. TYSABRI [Suspect]
     Route: 042
     Dates: start: 20100420, end: 20100701

REACTIONS (1)
  - DRUG SPECIFIC ANTIBODY PRESENT [None]
